FAERS Safety Report 6534292-X (Version None)
Quarter: 2010Q1

REPORT INFORMATION
  Report Type: 
  Country: None (occurrence: None)
  Receive Date: 20100112
  Receipt Date: 20100104
  Transmission Date: 20100710
  Serious: Yes (Other)
  Sender: FDA-Public Use
  Company Number: US-SANOFI-AVENTIS-2009SA003647

PATIENT
  Age: 73 Year
  Sex: Male
  Weight: 98.64 kg

DRUGS (12)
  1. MULTAQ [Suspect]
     Indication: ATRIAL FIBRILLATION
     Route: 048
     Dates: start: 20091104, end: 20091112
  2. CRESTOR [Concomitant]
     Route: 048
  3. DIGOXIN [Concomitant]
     Route: 048
  4. WARFARIN [Concomitant]
     Route: 048
  5. CIALIS [Concomitant]
     Route: 048
  6. ANDROGEL [Concomitant]
  7. METOPROLOL SUCCINATE [Concomitant]
     Route: 048
  8. LISINOPRIL AND HYDROCHLOROTHIAZIDE [Concomitant]
     Route: 048
  9. GLUCOPHAGE [Concomitant]
     Route: 048
  10. NITROGLYCERIN ^SLOVAKOFARMA^ [Concomitant]
  11. MULTI-VITAMINS [Concomitant]
     Route: 048
  12. FISH OIL [Concomitant]
     Route: 048

REACTIONS (5)
  - CARDIAC FAILURE CONGESTIVE [None]
  - DYSPNOEA [None]
  - OEDEMA [None]
  - VISION BLURRED [None]
  - WEIGHT INCREASED [None]
